FAERS Safety Report 4354240-0 (Version None)
Quarter: 2004Q2

REPORT INFORMATION
  Report Type: 
  Country: None (occurrence: None)
  Receive Date: 20040506
  Receipt Date: 20040504
  Transmission Date: 20050107
  Serious: Yes (Hospitalization)
  Sender: FDA-Public Use
  Company Number: FR-GLAXOSMITHKLINE-B0331670A

PATIENT
  Age: 92 Year
  Sex: Female

DRUGS (7)
  1. AUGMENTIN [Suspect]
     Indication: ERYSIPELAS
     Dosage: 1G THREE TIMES PER DAY
     Route: 048
     Dates: start: 20040329, end: 20040406
  2. PENICILLIN G [Suspect]
     Indication: ERYSIPELAS
     Dosage: 6IU3 THREE TIMES PER DAY
     Route: 042
     Dates: start: 20040330, end: 20040401
  3. TENORMIN [Concomitant]
     Route: 048
  4. MODURETIC 5-50 [Concomitant]
     Route: 048
  5. TIMOPTIC [Concomitant]
     Route: 047
  6. NOVONORM [Concomitant]
     Route: 048
  7. KARDEGIC [Concomitant]
     Route: 048

REACTIONS (4)
  - BLOOD ALKALINE PHOSPHATASE INCREASED [None]
  - CHOLESTASIS [None]
  - GAMMA-GLUTAMYLTRANSFERASE INCREASED [None]
  - LEUKOCYTOSIS [None]
